FAERS Safety Report 11215483 (Version 1)
Quarter: 2015Q2

REPORT INFORMATION
  Report Type: Spontaneous
  Country: TR (occurrence: None)
  Receive Date: 20150622
  Receipt Date: 20150622
  Transmission Date: 20150821
  Serious: Yes (Hospitalization)
  Sender: FDA-Public Use
  Company Number: 2015JUB00175

PATIENT
  Age: 15 Year
  Sex: Male

DRUGS (1)
  1. METHYLPREDNISOLONE (METHYLPREDNISOLONE) [Suspect]
     Active Substance: METHYLPREDNISOLONE
     Indication: NEPHROTIC SYNDROME

REACTIONS (3)
  - Acute psychosis [None]
  - Central nervous system lesion [None]
  - Withdrawal syndrome [None]
